FAERS Safety Report 9208148 (Version 2)
Quarter: 2013Q2

REPORT INFORMATION
  Report Type: Spontaneous
  Country: US (occurrence: US)
  Receive Date: 20130403
  Receipt Date: 20130529
  Transmission Date: 20140414
  Serious: No
  Sender: FDA-Public Use
  Company Number: US-009507513-1304USA001555

PATIENT
  Age: 84 Year
  Sex: Male
  Weight: 56.69 kg

DRUGS (3)
  1. MIRALAX [Suspect]
     Indication: CONSTIPATION
     Dosage: 17 G, QD
     Route: 048
     Dates: start: 20130315, end: 20130412
  2. MIRALAX [Suspect]
     Indication: MEDICAL OBSERVATION
  3. ACETAMINOPHEN (+) HYDROCODONE BITARTRATE [Concomitant]
     Indication: PRODUCT USED FOR UNKNOWN INDICATION
     Dosage: UNK, UNKNOWN

REACTIONS (3)
  - Flatulence [Unknown]
  - Incorrect drug administration duration [Unknown]
  - Drug ineffective [Unknown]
